FAERS Safety Report 6267120-0 (Version None)
Quarter: 2009Q3

REPORT INFORMATION
  Report Type: 
  Country: None (occurrence: None)
  Receive Date: 20090710
  Receipt Date: 20090707
  Transmission Date: 20100115
  Serious: Yes (Other)
  Sender: FDA-Public Use
  Company Number: ADR8182009 (REF NO.: NO-NOMAADVRE-RELISO-2009-7874)

PATIENT
  Age: 80 Year
  Sex: Female

DRUGS (4)
  1. SIMVASTATIN [Suspect]
     Dosage: 40 MG ORAL
     Route: 048
  2. LIPITOR [Concomitant]
  3. COZAAR [Concomitant]
  4. MICARDIS HCT [Concomitant]

REACTIONS (3)
  - COGNITIVE DISORDER [None]
  - JOINT SWELLING [None]
  - MYALGIA [None]
